FAERS Safety Report 16544522 (Version 1)
Quarter: 2019Q3

REPORT INFORMATION
  Report Type: Spontaneous
  Country: US (occurrence: US)
  Receive Date: 20190708
  Receipt Date: 20190708
  Transmission Date: 20191004
  Serious: Yes (Other)
  Sender: FDA-Public Use
  Company Number: None

PATIENT
  Age: 53 Year
  Sex: Male

DRUGS (2)
  1. CABOMETYX [Suspect]
     Active Substance: CABOZANTINIB S-MALATE
     Route: 048
  2. VOTRIRENT 200MG [Concomitant]
     Dates: start: 20181218, end: 20190101

REACTIONS (2)
  - Orchitis [None]
  - Therapy cessation [None]

NARRATIVE: CASE EVENT DATE: 20190621
